FAERS Safety Report 6426765-5 (Version None)
Quarter: 2009Q4

REPORT INFORMATION
  Report Type: 
  Country: None (occurrence: None)
  Receive Date: 20091103
  Receipt Date: 20091103
  Transmission Date: 20100525
  Serious: Yes (Life-Threatening)
  Sender: FDA-Public Use
  Company Number: None

PATIENT
  Age: 79 Year

DRUGS (1)
  1. CEFTRIAXONE [Suspect]
     Dosage: 1 GM EVERY DAY IV
     Route: 042
     Dates: start: 20091102, end: 20091102

REACTIONS (3)
  - INCOHERENT [None]
  - RESPIRATORY DEPRESSION [None]
  - WHEEZING [None]
